FAERS Safety Report 23507957 (Version 3)
Quarter: 2024Q2

REPORT INFORMATION
  Report Type: Spontaneous
  Country: US (occurrence: US)
  Receive Date: 20240209
  Receipt Date: 20240429
  Transmission Date: 20240716
  Serious: Yes (Other)
  Sender: FDA-Public Use
  Company Number: US-ELI_LILLY_AND_COMPANY-US202401017441

PATIENT
  Age: 75 Year
  Sex: Female
  Weight: 69.388 kg

DRUGS (20)
  1. MOUNJARO [Suspect]
     Active Substance: TIRZEPATIDE
     Indication: Type 2 diabetes mellitus
     Dosage: 2.5 MG, UNKNOWN
     Route: 058
     Dates: start: 20231010
  2. MOUNJARO [Suspect]
     Active Substance: TIRZEPATIDE
     Indication: Type 2 diabetes mellitus
     Dosage: 2.5 MG, UNKNOWN
     Route: 058
     Dates: start: 20231010
  3. MOUNJARO [Suspect]
     Active Substance: TIRZEPATIDE
     Indication: Type 2 diabetes mellitus
     Dosage: 2.5 MG, UNKNOWN
     Route: 058
     Dates: start: 20231010
  4. MOUNJARO [Suspect]
     Active Substance: TIRZEPATIDE
     Indication: Type 2 diabetes mellitus
     Dosage: 2.5 MG, UNKNOWN
     Route: 058
     Dates: start: 20231010
  5. MOUNJARO [Suspect]
     Active Substance: TIRZEPATIDE
     Indication: Hyperglycaemia
  6. MOUNJARO [Suspect]
     Active Substance: TIRZEPATIDE
     Indication: Hyperglycaemia
  7. MOUNJARO [Suspect]
     Active Substance: TIRZEPATIDE
     Indication: Hyperglycaemia
  8. MOUNJARO [Suspect]
     Active Substance: TIRZEPATIDE
     Indication: Hyperglycaemia
  9. MOUNJARO [Suspect]
     Active Substance: TIRZEPATIDE
     Indication: Type 2 diabetes mellitus
     Dosage: 5 MG, UNKNOWN
     Route: 058
  10. MOUNJARO [Suspect]
     Active Substance: TIRZEPATIDE
     Indication: Type 2 diabetes mellitus
     Dosage: 5 MG, UNKNOWN
     Route: 058
  11. MOUNJARO [Suspect]
     Active Substance: TIRZEPATIDE
     Indication: Type 2 diabetes mellitus
     Dosage: 5 MG, UNKNOWN
     Route: 058
  12. MOUNJARO [Suspect]
     Active Substance: TIRZEPATIDE
     Indication: Type 2 diabetes mellitus
     Dosage: 5 MG, UNKNOWN
     Route: 058
  13. MOUNJARO [Suspect]
     Active Substance: TIRZEPATIDE
     Indication: Hyperglycaemia
     Dosage: 5 MG, UNKNOWN
     Route: 058
     Dates: end: 20240304
  14. MOUNJARO [Suspect]
     Active Substance: TIRZEPATIDE
     Indication: Hyperglycaemia
     Dosage: 5 MG, UNKNOWN
     Route: 058
     Dates: end: 20240304
  15. MOUNJARO [Suspect]
     Active Substance: TIRZEPATIDE
     Indication: Hyperglycaemia
     Dosage: 5 MG, UNKNOWN
     Route: 058
     Dates: end: 20240304
  16. MOUNJARO [Suspect]
     Active Substance: TIRZEPATIDE
     Indication: Hyperglycaemia
     Dosage: 5 MG, UNKNOWN
     Route: 058
     Dates: end: 20240304
  17. GLIPIZIDE [Concomitant]
     Active Substance: GLIPIZIDE
     Indication: Product used for unknown indication
     Dosage: 5 MG
     Route: 065
  18. PAXIL CR [Concomitant]
     Active Substance: PAROXETINE HYDROCHLORIDE
     Indication: Product used for unknown indication
     Dosage: 25 MG
     Route: 065
  19. JARDIANCE [Concomitant]
     Active Substance: EMPAGLIFLOZIN
     Indication: Product used for unknown indication
     Dosage: 10 MG
     Route: 065
  20. ACIPHEX [Concomitant]
     Active Substance: RABEPRAZOLE SODIUM
     Indication: Product used for unknown indication
     Dosage: 20 MG
     Route: 065

REACTIONS (1)
  - Adenocarcinoma pancreas [Not Recovered/Not Resolved]

NARRATIVE: CASE EVENT DATE: 20240125
